FAERS Safety Report 25656867 (Version 1)
Quarter: 2025Q3

REPORT INFORMATION
  Report Type: Spontaneous
  Country: US (occurrence: US)
  Receive Date: 20250807
  Receipt Date: 20250807
  Transmission Date: 20251020
  Serious: Yes (Disabling, Other)
  Sender: JOHNSON AND JOHNSON
  Company Number: US-JNJFOC-20250800834

PATIENT
  Age: 62 Year
  Sex: Male

DRUGS (23)
  1. INVEGA [Suspect]
     Active Substance: PALIPERIDONE
     Indication: Product used for unknown indication
     Route: 065
  2. ABILIFY MAINTENA [Suspect]
     Active Substance: ARIPIPRAZOLE
     Indication: Schizophrenia
  3. ABILIFY MAINTENA [Suspect]
     Active Substance: ARIPIPRAZOLE
     Indication: Bipolar disorder
     Dates: start: 2017
  4. ABILIFY MAINTENA [Suspect]
     Active Substance: ARIPIPRAZOLE
  5. ABILIFY [Suspect]
     Active Substance: ARIPIPRAZOLE
     Indication: Schizophrenia
     Route: 048
     Dates: start: 2017
  6. ABILIFY [Suspect]
     Active Substance: ARIPIPRAZOLE
     Indication: Bipolar disorder
     Dosage: (70 MG PER WEEK) (7?DAYS A WEEK), UNKNOWN
     Route: 048
     Dates: start: 2017
  7. ABILIFY [Suspect]
     Active Substance: ARIPIPRAZOLE
     Route: 048
     Dates: start: 2017
  8. PHENOL\ZINC OXIDE [Suspect]
     Active Substance: PHENOL\ZINC OXIDE
  9. LUNESTA [Suspect]
     Active Substance: ESZOPICLONE
     Indication: Hypersomnia
  10. WELLBUTRIN [Suspect]
     Active Substance: BUPROPION HYDROCHLORIDE
  11. OXYCODONE [Suspect]
     Active Substance: OXYCODONE
  12. JANUMET [Concomitant]
     Active Substance: METFORMIN HYDROCHLORIDE\SITAGLIPTIN PHOSPHATE
     Indication: Product used for unknown indication
  13. SPIRONOLACTONE [Concomitant]
     Active Substance: SPIRONOLACTONE
     Indication: Product used for unknown indication
  14. ROSUVASTATIN [Concomitant]
     Active Substance: ROSUVASTATIN
     Indication: Product used for unknown indication
  15. LABETALOL [Concomitant]
     Active Substance: LABETALOL
     Indication: Product used for unknown indication
  16. LISINOPRIL [Concomitant]
     Active Substance: LISINOPRIL
     Indication: Product used for unknown indication
  17. CARVEDILOL [Concomitant]
     Active Substance: CARVEDILOL
     Indication: Product used for unknown indication
  18. MINOXIDIL [Concomitant]
     Active Substance: MINOXIDIL
     Indication: Product used for unknown indication
  19. PANTOPRAZOLE [Concomitant]
     Active Substance: PANTOPRAZOLE
     Indication: Product used for unknown indication
  20. ROLAIDS [Concomitant]
     Active Substance: CALCIUM CARBONATE\MAGNESIUM HYDROXIDE
     Indication: Product used for unknown indication
  21. GABAPENTIN [Concomitant]
     Active Substance: GABAPENTIN
     Indication: Product used for unknown indication
  22. HYDRALAZINE [Concomitant]
     Active Substance: HYDRALAZINE HYDROCHLORIDE
     Indication: Product used for unknown indication
  23. AMLODIPINE [Concomitant]
     Active Substance: AMLODIPINE BESYLATE
     Indication: Product used for unknown indication

REACTIONS (35)
  - Near death experience [Unknown]
  - Glaucoma [Unknown]
  - Walking disability [Unknown]
  - Cardiac failure congestive [Unknown]
  - Dementia Alzheimer^s type [Unknown]
  - Myocardial infarction [Unknown]
  - Cerebrovascular accident [Unknown]
  - Diabetes mellitus [Unknown]
  - Asthma [Unknown]
  - Bronchitis [Unknown]
  - Bowel movement irregularity [Unknown]
  - Anosmia [Unknown]
  - Injection site muscle weakness [Unknown]
  - Muscle spasms [Unknown]
  - Arthropathy [Unknown]
  - General physical health deterioration [Unknown]
  - Hypoacusis [Unknown]
  - Muscular dystrophy [Unknown]
  - Blood pressure measurement [Unknown]
  - Amnesia [Unknown]
  - Ageusia [Unknown]
  - Tremor [Unknown]
  - Hypoaesthesia [Unknown]
  - Speech disorder [Unknown]
  - Gastrooesophageal reflux disease [Unknown]
  - Aggression [Unknown]
  - Anxiety [Unknown]
  - Headache [Unknown]
  - Vomiting [Unknown]
  - Feeling abnormal [Unknown]
  - Bile output abnormal [Unknown]
  - Fall [Unknown]
  - Dizziness [Unknown]
  - Constipation [Unknown]
  - Myalgia [Unknown]
